FAERS Safety Report 4727587-3 (Version None)
Quarter: 2005Q3

REPORT INFORMATION
  Report Type: 
  Country: None (occurrence: None)
  Receive Date: 20050728
  Receipt Date: 20050721
  Transmission Date: 20060218
  Serious: Yes (Hospitalization)
  Sender: FDA-Public Use
  Company Number: 200516625GDDC

PATIENT
  Age: 57 Year
  Sex: Female
  Weight: 76 kg

DRUGS (7)
  1. METRONIDAZOLE [Suspect]
     Route: 048
     Dates: start: 20040805, end: 20040810
  2. MICTUROL SEDANTE [Suspect]
     Indication: CYSTITIS
     Dosage: DOSE: UNK
     Route: 048
     Dates: start: 20040701, end: 20040715
  3. BACCIDAL [Suspect]
     Indication: CYSTITIS
     Dosage: DOSE: UNK
     Route: 048
     Dates: start: 20040720, end: 20040731
  4. MONUROL [Suspect]
     Indication: CYSTITIS
     Dosage: DOSE: UNK
     Dates: start: 20040801, end: 20040803
  5. NSAID'S [Suspect]
     Indication: ARTHROPATHY
     Dosage: DOSE: UNK
     Dates: start: 20040501
  6. ALPRAZOLAM [Concomitant]
     Indication: CYSTITIS
     Dosage: DOSE: UNK
     Route: 048
  7. VENTOLIN [Concomitant]
     Route: 055

REACTIONS (9)
  - ABDOMINAL PAIN [None]
  - ALANINE AMINOTRANSFERASE INCREASED [None]
  - FREE FATTY ACIDS INCREASED [None]
  - GAMMA-GLUTAMYLTRANSFERASE INCREASED [None]
  - HAEMODIALYSIS [None]
  - HEPATIC ENZYME INCREASED [None]
  - INFLAMMATORY BOWEL DISEASE [None]
  - RECTAL HAEMORRHAGE [None]
  - RENAL FAILURE ACUTE [None]
